FAERS Safety Report 11713139 (Version 1)
Quarter: 2015Q4

REPORT INFORMATION
  Report Type: Spontaneous
  Country: US (occurrence: US)
  Receive Date: 20151109
  Receipt Date: 20151109
  Transmission Date: 20160304
  Serious: No
  Sender: FDA-Public Use
  Company Number: US-LUPIN PHARMACEUTICALS INC.-E2B_00003618

PATIENT
  Age: 67 Year
  Sex: Female
  Weight: 77.18 kg

DRUGS (2)
  1. LOSORTAN POTASSIUM [Suspect]
     Active Substance: LOSARTAN POTASSIUM
     Indication: ATRIAL FIBRILLATION
     Dates: start: 20150423
  2. CLONIDINE. [Concomitant]
     Active Substance: CLONIDINE
     Indication: ATRIAL FIBRILLATION
     Dosage: 0.03 MG/DAY
     Route: 061

REACTIONS (1)
  - Rash [Not Recovered/Not Resolved]

NARRATIVE: CASE EVENT DATE: 20150423
